FAERS Safety Report 7399797-0 (Version None)
Quarter: 2011Q2

REPORT INFORMATION
  Report Type: 
  Country: None (occurrence: None)
  Receive Date: 20110407
  Receipt Date: 20110331
  Transmission Date: 20111010
  Serious: Yes (Other)
  Sender: FDA-Public Use
  Company Number: US-ROCHE-768786

PATIENT
  Sex: Female
  Weight: 77.1 kg

DRUGS (4)
  1. VALIUM [Suspect]
     Indication: POST-TRAUMATIC STRESS DISORDER
     Route: 048
     Dates: start: 19740101
  2. NIFEDIPINE [Concomitant]
     Dosage: DOSE/STRENGTH: 90 MG AND 30 MG
  3. HYDROCHLOROTHIAZIDE [Concomitant]
  4. CRESTOR [Concomitant]

REACTIONS (2)
  - ADRENAL NEOPLASM [None]
  - EYE INFECTION [None]
